FAERS Safety Report 8397196-6 (Version None)
Quarter: 2012Q2

REPORT INFORMATION
  Report Type: 
  Country: None (occurrence: None)
  Receive Date: 20120530
  Receipt Date: 20120523
  Transmission Date: 20120825
  Serious: Yes (Disabling)
  Sender: FDA-Public Use
  Company Number: US-MERCK-1205USA04995

PATIENT
  Age: 40 Year
  Sex: Female

DRUGS (2)
  1. FOSAMAX [Suspect]
     Route: 048
     Dates: start: 20040101, end: 20090101
  2. FOSAMAX [Suspect]
     Route: 048
     Dates: start: 20040101, end: 20090101

REACTIONS (9)
  - ODYNOPHAGIA [None]
  - MYALGIA [None]
  - DYSPHAGIA [None]
  - DYSPEPSIA [None]
  - ARTHRALGIA [None]
  - PAIN [None]
  - OSTEONECROSIS OF JAW [None]
  - BONE PAIN [None]
  - CHEST PAIN [None]
